FAERS Safety Report 22638741 (Version 1)
Quarter: 2023Q2

REPORT INFORMATION
  Report Type: Spontaneous
  Country: US (occurrence: None)
  Receive Date: 20230623
  Receipt Date: 20230623
  Transmission Date: 20230721
  Serious: Yes (Other)
  Sender: FDA-Public Use
  Company Number: None

PATIENT
  Age: 46 Year
  Sex: Female
  Weight: 57.15 kg

DRUGS (4)
  1. SUTAB [Suspect]
     Active Substance: MAGNESIUM SULFATE\POTASSIUM CHLORIDE\SODIUM SULFATE
     Indication: Colonoscopy
     Dosage: 24 TABLETS TWICE A DAY ORAL?
     Route: 048
  2. VITAMIN D [Concomitant]
     Active Substance: VITAMIN D NOS
  3. ALLEGRA [Concomitant]
     Active Substance: FEXOFENADINE HYDROCHLORIDE
  4. OPZELURA [Concomitant]
     Active Substance: RUXOLITINIB PHOSPHATE

REACTIONS (9)
  - Vomiting [None]
  - Dehydration [None]
  - Asthenia [None]
  - Dizziness [None]
  - Dizziness [None]
  - Dysstasia [None]
  - Gait disturbance [None]
  - Aphonia [None]
  - Depressed level of consciousness [None]

NARRATIVE: CASE EVENT DATE: 20230618
